FAERS Safety Report 11165643 (Version 1)
Quarter: 2015Q2

REPORT INFORMATION
  Report Type: Spontaneous
  Country: US (occurrence: None)
  Receive Date: 20150603
  Receipt Date: 20150603
  Transmission Date: 20150821
  Serious: No
  Sender: FDA-Public Use
  Company Number: None

PATIENT
  Age: 74 Year
  Sex: Female
  Weight: 73.94 kg

DRUGS (7)
  1. AMLODIPINE [Concomitant]
     Active Substance: AMLODIPINE BESYLATE
  2. BENICAR [Concomitant]
     Active Substance: OLMESARTAN MEDOXOMIL
  3. CALCIUM [Concomitant]
     Active Substance: CALCIUM
  4. ATENOL [Concomitant]
     Active Substance: ATENOLOL
  5. FISH + FLAX OIL [Concomitant]
  6. ATORVASTATIN SANDOZ [Suspect]
     Active Substance: ATORVASTATIN
     Indication: BLOOD CHOLESTEROL ABNORMAL
     Dosage: 1 PILL
     Route: 048
     Dates: start: 20150428, end: 20150505
  7. MULTIVIT [Concomitant]
     Active Substance: VITAMINS

REACTIONS (8)
  - Dizziness [None]
  - Impaired driving ability [None]
  - Myalgia [None]
  - Confusional state [None]
  - Abdominal pain upper [None]
  - Pain in extremity [None]
  - Fatigue [None]
  - Feeling abnormal [None]

NARRATIVE: CASE EVENT DATE: 20150428
